FAERS Safety Report 17329991 (Version 1)
Quarter: 2020Q1

REPORT INFORMATION
  Report Type: Other
  Country: GR (occurrence: GR)
  Receive Date: 20200128
  Receipt Date: 20200128
  Transmission Date: 20200409
  Serious: Yes (Hospitalization, Other)
  Sender: FDA-Public Use
  Company Number: GR-ALSI-202000024

PATIENT
  Age: 37 Year
  Sex: Male

DRUGS (4)
  1. OXYGEN. [Suspect]
     Active Substance: OXYGEN
     Indication: PRODUCT USED FOR UNKNOWN INDICATION
     Route: 055
  2. FOLIC ACID. [Concomitant]
     Active Substance: FOLIC ACID
  3. LEVOXACIN LEVOFLOXACIN [Suspect]
     Active Substance: LEVOFLOXACIN
  4. CEFUROXIME. [Concomitant]
     Active Substance: CEFUROXIME

REACTIONS (1)
  - Haemolysis [Unknown]
